FAERS Safety Report 10366297 (Version 2)
Quarter: 2014Q3

REPORT INFORMATION
  Report Type: Report from Study
  Country: US (occurrence: US)
  Receive Date: 20140806
  Receipt Date: 20140806
  Transmission Date: 20150326
  Serious: Yes (Hospitalization, Other)
  Sender: FDA-Public Use
  Company Number: PHEH2014US013529

PATIENT
  Age: 66 Year
  Sex: Male

DRUGS (5)
  1. TAXOTERE [Concomitant]
     Active Substance: DOCETAXEL
     Dosage: 8 CYCLES
  2. XTANDI [Concomitant]
     Active Substance: ENZALUTAMIDE
     Indication: PROSTATIC SPECIFIC ANTIGEN INCREASED
     Dosage: UNK UKN, UNK
     Dates: start: 201308
  3. JEVTANA [Concomitant]
     Active Substance: CABAZITAXEL
     Dosage: 2 CYCLES
  4. ZOMETA [Suspect]
     Active Substance: ZOLEDRONIC ACID
     Indication: PROSTATE CANCER
     Dosage: 4 MG, UNK
  5. ZOMETA [Suspect]
     Active Substance: ZOLEDRONIC ACID
     Indication: BONE CANCER

REACTIONS (23)
  - Nervous system disorder [Not Recovered/Not Resolved]
  - Prostate cancer [Unknown]
  - Hormone-refractory prostate cancer [Unknown]
  - Full blood count decreased [Unknown]
  - Bone lesion [Unknown]
  - Intervertebral disc degeneration [Unknown]
  - Arthralgia [Unknown]
  - Nerve root compression [Unknown]
  - Vertebral foraminal stenosis [Unknown]
  - Malignant neoplasm progression [Unknown]
  - Chest pain [Recovered/Resolved]
  - Exostosis [Unknown]
  - Pain in extremity [Unknown]
  - Muscular weakness [Recovered/Resolved]
  - Spinal cord compression [Unknown]
  - Metastases to spine [Unknown]
  - Groin pain [Unknown]
  - Discomfort [Unknown]
  - Myopathy [Unknown]
  - Vertebral osteophyte [Unknown]
  - Spinal column stenosis [Unknown]
  - Metastases to bone [Not Recovered/Not Resolved]
  - Spinal cord disorder [Unknown]

NARRATIVE: CASE EVENT DATE: 20140513
